FAERS Safety Report 6277997-0 (Version None)
Quarter: 2009Q3

REPORT INFORMATION
  Report Type: 
  Country: None (occurrence: None)
  Receive Date: 20090722
  Receipt Date: 20070516
  Transmission Date: 20100115
  Serious: Yes (Hospitalization, Other)
  Sender: FDA-Public Use
  Company Number: US-ASTRAZENECA-2006UW11280

PATIENT
  Age: 27 Year
  Sex: Female
  Weight: 147.4 kg

DRUGS (17)
  1. SEROQUEL [Suspect]
     Indication: BIPOLAR DISORDER
     Dosage: 100 MG TO 600 MG DAILY
     Route: 048
     Dates: start: 20040602, end: 20060531
  2. ABILIFY [Concomitant]
  3. RISPERDAL [Concomitant]
  4. PROZAC [Concomitant]
  5. SUDAL SR [Concomitant]
     Indication: NASAL CONGESTION
     Dosage: FREQUENCY: TWO TIMES A DAY
     Route: 048
     Dates: start: 20050214
  6. EC-NAPROSYN [Concomitant]
     Route: 048
     Dates: start: 20041025
  7. ZANAFLEX [Concomitant]
     Dates: start: 20051012
  8. AVINZA [Concomitant]
     Dates: start: 20050214
  9. PERCOCET [Concomitant]
     Dosage: 10/650 HALF EVERY 12 HOURS
     Dates: start: 20051012
  10. CYMBALTA [Concomitant]
     Dates: start: 20041201
  11. ALPRAZOLAM [Concomitant]
     Dates: start: 20040409
  12. CHLORZOXAZONE [Concomitant]
     Dates: start: 20040430
  13. BEXTRA [Concomitant]
     Dates: start: 20040430
  14. DEPAKOTE ER [Concomitant]
     Dates: start: 20040527
  15. PAXIL CR [Concomitant]
     Dates: start: 20040622
  16. CLONAZEPAM [Concomitant]
     Dates: start: 20040622
  17. ULTRACET [Concomitant]
     Dates: start: 20040706

REACTIONS (5)
  - CHOLECYSTECTOMY [None]
  - FALL [None]
  - HYSTERECTOMY [None]
  - PANCREATITIS [None]
  - VISUAL ACUITY REDUCED [None]
